FAERS Safety Report 9734360 (Version 1)
Quarter: 2013Q4

REPORT INFORMATION
  Report Type: Report from Study
  Country: AR (occurrence: AR)
  Receive Date: 20131206
  Receipt Date: 20131206
  Transmission Date: 20140711
  Serious: Yes (Hospitalization)
  Sender: FDA-Public Use
  Company Number: AR-ROCHE-1314728

PATIENT
  Sex: Female

DRUGS (2)
  1. RANIBIZUMAB [Suspect]
     Indication: VISUAL IMPAIRMENT
     Route: 050
     Dates: start: 2012
  2. PELMEC [Concomitant]
     Dosage: 5/100 MG TABLET
     Route: 065

REACTIONS (4)
  - Hypertension [Not Recovered/Not Resolved]
  - Convulsion [Not Recovered/Not Resolved]
  - Hip fracture [Unknown]
  - Fall [Unknown]
